FAERS Safety Report 15201750 (Version 2)
Quarter: 2018Q3

REPORT INFORMATION
  Report Type: Spontaneous
  Country: US (occurrence: US)
  Receive Date: 20180726
  Receipt Date: 20180821
  Transmission Date: 20181010
  Serious: No
  Sender: FDA-Public Use
  Company Number: US-LEXICON PHARMACEUTICALS, INC-18-1606-00796

PATIENT
  Sex: Male
  Weight: 82.63 kg

DRUGS (34)
  1. LORAZEPAM. [Concomitant]
     Active Substance: LORAZEPAM
  2. METOPROLOL SUCCINATE. [Concomitant]
     Active Substance: METOPROLOL SUCCINATE
  3. PROCTOZONE?HC [Concomitant]
     Active Substance: HYDROCORTISONE
  4. OXYCODONE [Concomitant]
     Active Substance: OXYCODONE
     Route: 048
  5. OPTIVAR [Concomitant]
     Active Substance: AZELASTINE HYDROCHLORIDE
     Route: 047
  6. VITAMIN B12 [Concomitant]
     Active Substance: CYANOCOBALAMIN
  7. OMEPRAZOLE. [Concomitant]
     Active Substance: OMEPRAZOLE
  8. TELOTRISTAT ETHYL [Suspect]
     Active Substance: TELOTRISTAT ETHYL
     Indication: CARCINOID TUMOUR
     Route: 048
     Dates: start: 20180425
  9. IBUPROFEN. [Concomitant]
     Active Substance: IBUPROFEN
  10. LOPERAMIDE [Concomitant]
     Active Substance: LOPERAMIDE
  11. ONDANSETRON [Concomitant]
     Active Substance: ONDANSETRON
  12. TRIAMTERENE?HYDROCHLORTHIAZID [Concomitant]
  13. TEMAZEPAM. [Concomitant]
     Active Substance: TEMAZEPAM
     Route: 048
  14. DEXAMETHASONE. [Concomitant]
     Active Substance: DEXAMETHASONE
     Route: 048
  15. AZITHROMYCIN ANHYDROUS. [Concomitant]
     Active Substance: AZITHROMYCIN ANHYDROUS
  16. OCTREOTIDE ACETATE. [Concomitant]
     Active Substance: OCTREOTIDE ACETATE
     Route: 058
  17. LEVAQUIN [Concomitant]
     Active Substance: LEVOFLOXACIN
     Route: 048
  18. EVEROLIMUS. [Concomitant]
     Active Substance: EVEROLIMUS
  19. CETIRIZINE [Concomitant]
     Active Substance: CETIRIZINE HYDROCHLORIDE
  20. OYSTER SHELL CALCIUM [Concomitant]
     Active Substance: CALCIUM
  21. LOMOTIL [Concomitant]
     Active Substance: ATROPINE SULFATE\DIPHENOXYLATE HYDROCHLORIDE
     Route: 048
  22. SYMBICORT [Concomitant]
     Active Substance: BUDESONIDE\FORMOTEROL FUMARATE DIHYDRATE
  23. NITROSTAT [Concomitant]
     Active Substance: NITROGLYCERIN
     Route: 060
  24. SANDOSTATIN LAR DEPOT [Concomitant]
     Active Substance: OCTREOTIDE ACETATE
     Dates: start: 1997, end: 199803
  25. ADVAIR DISKUS [Concomitant]
     Active Substance: FLUTICASONE PROPIONATE\SALMETEROL XINAFOATE
  26. ALLOPURINOL. [Concomitant]
     Active Substance: ALLOPURINOL
  27. TAMSULOSIN [Concomitant]
     Active Substance: TAMSULOSIN
  28. PROVENTIL HFA [Concomitant]
     Active Substance: ALBUTEROL SULFATE
     Route: 048
  29. COLCRYS [Concomitant]
     Active Substance: COLCHICINE
     Route: 048
  30. SALINE MIST [Concomitant]
     Active Substance: SODIUM CHLORIDE
     Route: 045
  31. BENADRYL [Concomitant]
     Active Substance: DIPHENHYDRAMINE HYDROCHLORIDE
     Route: 048
  32. ASPIRIN. [Concomitant]
     Active Substance: ASPIRIN
  33. CALCIUM [Concomitant]
     Active Substance: CALCIUM
     Route: 048
  34. SANDOSTATIN LAR DEPOT [Concomitant]
     Active Substance: OCTREOTIDE ACETATE
     Route: 030

REACTIONS (1)
  - Oedema peripheral [Not Recovered/Not Resolved]

NARRATIVE: CASE EVENT DATE: 2018
